FAERS Safety Report 16819558 (Version 2)
Quarter: 2019Q4

REPORT INFORMATION
  Report Type: Spontaneous
  Country: GB (occurrence: GB)
  Receive Date: 20190917
  Receipt Date: 20191002
  Transmission Date: 20200122
  Serious: Yes (Other)
  Sender: FDA-Public Use
  Company Number: GB-GILEAD-2019-0428874

PATIENT
  Age: 76 Year
  Sex: Male

DRUGS (1)
  1. RANEXA [Suspect]
     Active Substance: RANOLAZINE
     Indication: PRODUCT USED FOR UNKNOWN INDICATION
     Dosage: 750 MG, BID
     Route: 048
     Dates: start: 201803

REACTIONS (5)
  - Chromaturia [Unknown]
  - Dizziness [Unknown]
  - Asthenia [Unknown]
  - Amnesia [Unknown]
  - Vertigo [Unknown]
